FAERS Safety Report 19640854 (Version 1)
Quarter: 2021Q3

REPORT INFORMATION
  Report Type: Spontaneous
  Country: US (occurrence: US)
  Receive Date: 20210729
  Receipt Date: 20210729
  Transmission Date: 20211014
  Serious: No
  Sender: FDA-Public Use
  Company Number: US-PERRIGO-21US004744

PATIENT
  Sex: Female
  Weight: 49.89 kg

DRUGS (4)
  1. MINOXIDIL. [Suspect]
     Active Substance: MINOXIDIL
     Indication: ALOPECIA
     Dosage: 0.5 ML, QOD
     Route: 061
     Dates: start: 2012, end: 202103
  2. MINOXIDIL. [Suspect]
     Active Substance: MINOXIDIL
     Indication: ALOPECIA
     Dosage: 0.5 ML, QOD
     Route: 061
     Dates: start: 2012, end: 202103
  3. MINOXIDIL. [Suspect]
     Active Substance: MINOXIDIL
     Dosage: 0.5 ML, QD
     Route: 061
     Dates: start: 202103
  4. CORTISONE [Concomitant]
     Active Substance: CORTISONE
     Indication: LICHEN PLANOPILARIS
     Dosage: UNK, EVERY OTHER MONTH
     Route: 030
     Dates: start: 2017

REACTIONS (5)
  - Inappropriate schedule of product administration [Recovered/Resolved]
  - Product administered at inappropriate site [Recovered/Resolved]
  - Superficial vein prominence [Not Recovered/Not Resolved]
  - Off label use [Recovered/Resolved]
  - Application site pruritus [Recovered/Resolved]

NARRATIVE: CASE EVENT DATE: 2012
